FAERS Safety Report 6763367-5 (Version None)
Quarter: 2010Q2

REPORT INFORMATION
  Report Type: 
  Country: None (occurrence: None)
  Receive Date: 20100608
  Receipt Date: 20100608
  Transmission Date: 20101027
  Serious: No
  Sender: FDA-Public Use
  Company Number: None

PATIENT

DRUGS (1)
  1. GUAIFENESIN 200MG MAJOR [Suspect]
     Dates: start: 20100509, end: 20100602

REACTIONS (1)
  - PRODUCT DOSAGE FORM ISSUE [None]
